FAERS Safety Report 6475213-8 (Version None)
Quarter: 2009Q4

REPORT INFORMATION
  Report Type: 
  Country: None (occurrence: None)
  Receive Date: 20091204
  Receipt Date: 20090518
  Transmission Date: 20100525
  Serious: Yes (Other)
  Sender: FDA-Public Use
  Company Number: US-ELI_LILLY_AND_COMPANY-US200903006693

PATIENT
  Age: 35 Year
  Sex: Female
  Weight: 105.22 kg

DRUGS (2)
  1. CYMBALTA [Suspect]
     Indication: DEPRESSION
     Dosage: 30 MG, DAILY (1/D)
     Dates: start: 20090204, end: 20090320
  2. IRON SULFATETHIAMIN COMPOUND TAB [Concomitant]

REACTIONS (2)
  - HEPATIC STEATOSIS [None]
  - HEPATITIS [None]
